FAERS Safety Report 5344480-6 (Version None)
Quarter: 2007Q2

REPORT INFORMATION
  Report Type: 
  Country: None (occurrence: None)
  Receive Date: 20070604
  Receipt Date: 20070524
  Transmission Date: 20071010
  Serious: Yes (Congenital Anomaly)
  Sender: FDA-Public Use
  Company Number: UG-GILEAD-2007-0012157

PATIENT
  Weight: 3.4 kg

DRUGS (2)
  1. VIREAD [Suspect]
  2. COMBIVIR [Suspect]

REACTIONS (1)
  - ACROCHORDON [None]
